FAERS Safety Report 16785426 (Version 5)
Quarter: 2019Q4

REPORT INFORMATION
  Report Type: Report from Study
  Country: None (occurrence: NL)
  Receive Date: 20190909
  Receipt Date: 20191224
  Transmission Date: 20200122
  Serious: Yes (Hospitalization)
  Sender: FDA-Public Use
  Company Number: NL-ABBVIE-17K-114-2144240-00

PATIENT
  Age: 74 Year
  Sex: Male
  Weight: 80.9 kg

DRUGS (22)
  1. DUODOPA [Suspect]
     Active Substance: CARBIDOPA\LEVODOPA
     Dosage: MD: 12.0, CD: 3.7, ED: 3.0, CND: 3.4, END: 3.0
     Route: 050
     Dates: start: 2017, end: 2017
  2. MADOPAR HBS [Concomitant]
     Active Substance: BENSERAZIDE HYDROCHLORIDE\LEVODOPA
     Indication: PRODUCT USED FOR UNKNOWN INDICATION
     Dates: end: 201710
  3. DOPAMINE [Concomitant]
     Active Substance: DOPAMINE HYDROCHLORIDE
     Indication: PRODUCT USED FOR UNKNOWN INDICATION
  4. MIRTAZAPINE. [Concomitant]
     Active Substance: MIRTAZAPINE
     Indication: PRODUCT USED FOR UNKNOWN INDICATION
     Dates: end: 20180219
  5. DUODOPA [Suspect]
     Active Substance: CARBIDOPA\LEVODOPA
     Dosage: MD: 12, CD: 3.7, ED: 3.0, CND: 2.5, END: 3.0
     Route: 050
     Dates: start: 2017, end: 2017
  6. DUODOPA [Suspect]
     Active Substance: CARBIDOPA\LEVODOPA
     Dosage: MD: 10.0 TO 9.5 ML  CD: 4.6  EXTRA DOSE: 3.0  ND : 3.7 ML  END: 3.0
     Route: 050
  7. DUODOPA [Suspect]
     Active Substance: CARBIDOPA\LEVODOPA
     Dosage: MD DECREASED WITH 1 ML TO 12.0 ML/HR CD: INCREASED WITH 0.3 ML TO 2.2 ML/HOUR IN NIGHT
     Route: 050
     Dates: start: 2017
  8. DUODOPA [Suspect]
     Active Substance: CARBIDOPA\LEVODOPA
     Dosage: MD11; CD 4.0; ED 3.0; CND 3.7; END: 3.0
     Route: 050
     Dates: start: 2018, end: 2018
  9. DUODOPA [Suspect]
     Active Substance: CARBIDOPA\LEVODOPA
     Dosage: MD 7 CD 3.9 ED 2.0, ND 2.1
     Route: 050
  10. DUODOPA [Suspect]
     Active Substance: CARBIDOPA\LEVODOPA
     Dosage: MD 13, CD 3.7, ED 3.0 ML ND: 1.9, 2 PUMPS, 1.5 CASSETTE
     Route: 050
     Dates: start: 2017, end: 2017
  11. DUODOPA [Suspect]
     Active Substance: CARBIDOPA\LEVODOPA
     Dosage: MD: 12.0, CD: 3.7, ED: 3.0, CND: 3.4, END: 3.0
     Route: 050
     Dates: start: 2017, end: 2017
  12. DUODOPA [Suspect]
     Active Substance: CARBIDOPA\LEVODOPA
     Dosage: MD11.5; CD 4.0; ED 3.0; CND 3.7; END: 3.0
     Route: 050
     Dates: start: 201801, end: 2018
  13. DUODOPA [Suspect]
     Active Substance: CARBIDOPA\LEVODOPA
     Dosage: MD10.5; CD 4.6; ED 3.0; ND 0.0; END: 3.0
     Route: 050
  14. DUODOPA [Suspect]
     Active Substance: CARBIDOPA\LEVODOPA
     Dosage: MD: 10.5ML, CD: 4.7ML, ED: 3ML, ND: 3.7ML.
     Route: 050
  15. DUODOPA [Suspect]
     Active Substance: CARBIDOPA\LEVODOPA
     Indication: PARKINSON^S DISEASE
     Dosage: MD 14, CD 3.7, ED 3
     Route: 050
     Dates: start: 20171016, end: 2017
  16. DUODOPA [Suspect]
     Active Substance: CARBIDOPA\LEVODOPA
     Dosage: MD: 11.5, CD: 4.0, ED: 3.0, CND: 3.0, END: 3.0
     Route: 050
     Dates: start: 2017
  17. DUODOPA [Suspect]
     Active Substance: CARBIDOPA\LEVODOPA
     Dosage: MD10.5; CD 4.3; ED 3.0; CND 3.7; END: 3.0
     Route: 050
     Dates: start: 2018
  18. DUODOPA [Suspect]
     Active Substance: CARBIDOPA\LEVODOPA
     Dosage: MD 10.5 CD 4.9 ED 3.0 NIGHT CD 3.9 NIGHT ED 3.0
     Route: 050
  19. DUODOPA [Suspect]
     Active Substance: CARBIDOPA\LEVODOPA
     Dosage: MD 7 CD 3.5 ED 2
     Route: 050
  20. DUODOPA [Suspect]
     Active Substance: CARBIDOPA\LEVODOPA
     Dosage: DAY TIME PUMP: MD: 10.0 CD: 4.6  ED: 3.0?NIGHT TIME PUMP : CD: 3.7 ML  ED: 3.0
     Route: 050
  21. DUODOPA [Suspect]
     Active Substance: CARBIDOPA\LEVODOPA
     Dosage: MD 10.5, CD 5.3, ED 3, NCD 3.9, NED 3
     Route: 050
  22. DOMPERIDONE [Concomitant]
     Active Substance: DOMPERIDONE
     Indication: PRODUCT USED FOR UNKNOWN INDICATION

REACTIONS (51)
  - Gait disturbance [Recovering/Resolving]
  - Nausea [Recovered/Resolved]
  - Drug ineffective [Recovered/Resolved]
  - Parkinson^s disease [Not Recovered/Not Resolved]
  - Hallucination [Not Recovered/Not Resolved]
  - Middle insomnia [Not Recovered/Not Resolved]
  - Mobility decreased [Not Recovered/Not Resolved]
  - Feeling abnormal [Not Recovered/Not Resolved]
  - Sleep disorder [Recovered/Resolved]
  - Abdominal distension [Recovered/Resolved]
  - Muscle rigidity [Not Recovered/Not Resolved]
  - Fatigue [Not Recovered/Not Resolved]
  - Dizziness [Not Recovered/Not Resolved]
  - Sleep disorder [Recovering/Resolving]
  - Dyskinesia [Not Recovered/Not Resolved]
  - Confusional state [Not Recovered/Not Resolved]
  - Unevaluable event [Not Recovered/Not Resolved]
  - Muscular weakness [Not Recovered/Not Resolved]
  - Decreased appetite [Recovering/Resolving]
  - Agitation [Unknown]
  - Hyperkinesia [Recovering/Resolving]
  - Dyskinesia [Recovered/Resolved]
  - Fibroma [Recovering/Resolving]
  - Nocturnal dyspnoea [Not Recovered/Not Resolved]
  - Medical device site discolouration [Unknown]
  - Diarrhoea [Not Recovered/Not Resolved]
  - On and off phenomenon [Not Recovered/Not Resolved]
  - Freezing phenomenon [Not Recovered/Not Resolved]
  - Device leakage [Unknown]
  - Restlessness [Not Recovered/Not Resolved]
  - Rapid eye movements sleep abnormal [Not Recovered/Not Resolved]
  - Crohn^s disease [Not Recovered/Not Resolved]
  - Muscle fatigue [Recovering/Resolving]
  - Drug ineffective [Recovered/Resolved]
  - Bradykinesia [Not Recovered/Not Resolved]
  - Delirium [Not Recovered/Not Resolved]
  - Restlessness [Recovered/Resolved]
  - Musculoskeletal stiffness [Not Recovered/Not Resolved]
  - Frequent bowel movements [Not Recovered/Not Resolved]
  - Tension [Not Recovered/Not Resolved]
  - Hot flush [Not Recovered/Not Resolved]
  - Stoma site reaction [Recovering/Resolving]
  - Stoma site discharge [Recovered/Resolved]
  - Stoma site haemorrhage [Recovered/Resolved]
  - Psychomotor hyperactivity [Not Recovered/Not Resolved]
  - Abnormal faeces [Not Recovered/Not Resolved]
  - Taste disorder [Recovering/Resolving]
  - Weight decreased [Unknown]
  - Insomnia [Recovered/Resolved]
  - Therapeutic response shortened [Not Recovered/Not Resolved]
  - Stoma site discharge [Not Recovered/Not Resolved]

NARRATIVE: CASE EVENT DATE: 2017
